FAERS Safety Report 10889872 (Version 1)
Quarter: 2015Q1

REPORT INFORMATION
  Report Type: Spontaneous
  Country: US (occurrence: US)
  Receive Date: 20150305
  Receipt Date: 20150305
  Transmission Date: 20150721
  Serious: No
  Sender: FDA-Public Use
  Company Number: US-BAUSCH-BL-2014-010436

PATIENT
  Sex: Female

DRUGS (1)
  1. LUZU [Suspect]
     Active Substance: LULICONAZOLE
     Indication: PRODUCT USED FOR UNKNOWN INDICATION

REACTIONS (2)
  - Pruritus [Unknown]
  - Paraesthesia [Unknown]
